FAERS Safety Report 8612810-5 (Version None)
Quarter: 2012Q3

REPORT INFORMATION
  Report Type: 
  Country: None (occurrence: None)
  Receive Date: 20120822
  Receipt Date: 20120207
  Transmission Date: 20120928
  Serious: No
  Sender: FDA-Public Use
  Company Number: US-ASTRAZENECA-2010SE36216

PATIENT
  Age: 82 Year
  Sex: Female
  Weight: 59 kg

DRUGS (7)
  1. FLUTICASONE PROPIONATE/SALMETEROL [Concomitant]
  2. SPIRIVA [Concomitant]
  3. CALCIUM CITRATE [Concomitant]
  4. HYDROCHLOROTHIAZIDE [Concomitant]
  5. NORVASC [Concomitant]
  6. SYMBICORT [Suspect]
     Dosage: 80/4.5, 2 PUFFS DAILY
     Route: 055
     Dates: start: 20100601
  7. ASPIRIN [Concomitant]

REACTIONS (6)
  - PALPITATIONS [None]
  - THERAPEUTIC RESPONSE DELAYED [None]
  - DRUG DOSE OMISSION [None]
  - EXTRASYSTOLES [None]
  - DYSPHONIA [None]
  - HEART RATE INCREASED [None]
